FAERS Safety Report 20568690 (Version 1)
Quarter: 2022Q1

REPORT INFORMATION
  Report Type: Spontaneous
  Country: None (occurrence: FR)
  Receive Date: 20220308
  Receipt Date: 20220308
  Transmission Date: 20220423
  Serious: Yes (Hospitalization)
  Sender: FDA-Public Use
  Company Number: FR-AFSSAPS-TO20219379

PATIENT
  Age: 10 Month
  Sex: Female
  Weight: 9 kg

DRUGS (2)
  1. OXYGEN [Suspect]
     Active Substance: OXYGEN
     Indication: Sedation
     Route: 055
     Dates: start: 20211206, end: 20211206
  2. NITROUS OXIDE [Suspect]
     Active Substance: NITROUS OXIDE
     Route: 055
     Dates: start: 20211206, end: 20211206

REACTIONS (1)
  - Generalised tonic-clonic seizure [Recovered/Resolved]
